FAERS Safety Report 10241683 (Version 1)
Quarter: 2014Q2

REPORT INFORMATION
  Report Type: Spontaneous
  Country: DE (occurrence: DE)
  Receive Date: 20140617
  Receipt Date: 20140617
  Transmission Date: 20141212
  Serious: Yes (Hospitalization)
  Sender: FDA-Public Use
  Company Number: DE-SA-2014SA074039

PATIENT
  Age: 74 Year
  Sex: Male

DRUGS (15)
  1. CLEXANE [Suspect]
     Indication: PRODUCT USED FOR UNKNOWN INDICATION
     Route: 058
     Dates: start: 20120413, end: 20120419
  2. CLEXANE [Suspect]
     Indication: PRODUCT USED FOR UNKNOWN INDICATION
     Route: 058
     Dates: start: 20120420, end: 20120420
  3. CLEXANE [Suspect]
     Indication: PRODUCT USED FOR UNKNOWN INDICATION
     Route: 058
     Dates: start: 20120421, end: 20120502
  4. MIRTAZAPINE [Suspect]
     Indication: PRODUCT USED FOR UNKNOWN INDICATION
     Route: 048
     Dates: start: 20120327, end: 20120422
  5. MIRTAZAPINE [Suspect]
     Indication: PRODUCT USED FOR UNKNOWN INDICATION
     Route: 048
     Dates: start: 20120423, end: 20120502
  6. CIPRALEX [Suspect]
     Indication: PRODUCT USED FOR UNKNOWN INDICATION
     Route: 048
     Dates: start: 20120327, end: 20120330
  7. CIPRALEX [Suspect]
     Indication: PRODUCT USED FOR UNKNOWN INDICATION
     Route: 048
     Dates: start: 20120331, end: 20120502
  8. EBIXA [Concomitant]
     Route: 048
     Dates: start: 20100101, end: 20120418
  9. EBIXA [Concomitant]
     Route: 048
     Dates: start: 20120419, end: 20120420
  10. EBIXA [Concomitant]
     Route: 048
     Dates: start: 20120421, end: 20120425
  11. EBIXA [Concomitant]
     Route: 048
     Dates: start: 20120426, end: 20120426
  12. EBIXA [Concomitant]
     Route: 048
     Dates: start: 20120427, end: 20120502
  13. RISPERIDONE [Concomitant]
     Route: 048
     Dates: start: 20120413, end: 20120413
  14. RISPERIDONE [Concomitant]
     Route: 048
     Dates: start: 20120414, end: 20120501
  15. BISOPROLOL [Concomitant]
     Route: 048
     Dates: start: 20090101, end: 20120502

REACTIONS (5)
  - Tachycardia [Recovering/Resolving]
  - Cerebellar haemorrhage [Recovering/Resolving]
  - Restlessness [Recovering/Resolving]
  - Disorientation [Recovering/Resolving]
  - Cold sweat [Recovering/Resolving]
